FAERS Safety Report 6222983-X (Version None)
Quarter: 2009Q2

REPORT INFORMATION
  Report Type: 
  Country: None (occurrence: None)
  Receive Date: 20090611
  Receipt Date: 20090605
  Transmission Date: 20091009
  Serious: Yes (Other)
  Sender: FDA-Public Use
  Company Number: US-ASTRAZENECA-2009UW14658

PATIENT
  Age: 32 Year
  Sex: Female
  Weight: 77.1 kg

DRUGS (4)
  1. CRESTOR [Suspect]
     Route: 048
     Dates: start: 20090201, end: 20090401
  2. FISH OIL [Concomitant]
  3. BENADRYL [Concomitant]
  4. COENZYME Q10 [Concomitant]

REACTIONS (7)
  - DEPRESSION [None]
  - FATIGUE [None]
  - HYPOAESTHESIA [None]
  - IRRITABILITY [None]
  - MIGRAINE [None]
  - MYALGIA [None]
  - SWELLING [None]
